FAERS Safety Report 6268391-7 (Version None)
Quarter: 2009Q3

REPORT INFORMATION
  Report Type: 
  Country: None (occurrence: None)
  Receive Date: 20090715
  Receipt Date: 20090702
  Transmission Date: 20100115
  Serious: Yes (Hospitalization)
  Sender: FDA-Public Use
  Company Number: US-ROCHE-642197

PATIENT
  Age: 52 Year
  Sex: Female

DRUGS (3)
  1. CAPECITABINE [Suspect]
     Indication: BREAST CANCER
     Dosage: FREQUENCY: DAYS 1-14 Q21, LAST DOSE ON 11 JUNE 2009
     Route: 048
     Dates: start: 20090416
  2. DOCETAXEL [Suspect]
     Indication: BREAST CANCER
     Dosage: FREQUENCY: OVER 1 HOUR Q21 DAYS. LAST DOSE ON 29 MAY 2009
     Route: 042
     Dates: start: 20090416
  3. NEUPOGEN [Suspect]
     Route: 065

REACTIONS (2)
  - BLOOD LACTATE DEHYDROGENASE INCREASED [None]
  - MYOSITIS [None]
